FAERS Safety Report 11909640 (Version 1)
Quarter: 2016Q1

REPORT INFORMATION
  Report Type: Spontaneous
  Country: US (occurrence: None)
  Receive Date: 20160108
  Receipt Date: 20160108
  Transmission Date: 20160526
  Serious: Yes (Hospitalization)
  Sender: FDA-Public Use
  Company Number: 002036740A

PATIENT
  Age: 48 Year
  Sex: Female

DRUGS (6)
  1. XANAX [Concomitant]
     Active Substance: ALPRAZOLAM
  2. PRENATAL VITAMINS [Concomitant]
     Active Substance: VITAMINS
  3. VERAPAMIL [Concomitant]
     Active Substance: VERAPAMIL HYDROCHLORIDE
  4. IRON [Concomitant]
     Active Substance: IRON
  5. PROACTIV RENEWING CLEANSER [Suspect]
     Active Substance: BENZOYL PEROXIDE
     Indication: ACNE
     Dosage: DERMAL
     Route: 061
     Dates: start: 20151120, end: 20151121
  6. PROACTIV REPAIRING TREATMENT [Suspect]
     Active Substance: BENZOYL PEROXIDE
     Indication: ACNE
     Dosage: DERMAL
     Route: 061
     Dates: start: 20151120, end: 20151121

REACTIONS (2)
  - Hypersensitivity [None]
  - Exposure during pregnancy [None]

NARRATIVE: CASE EVENT DATE: 20151121
